FAERS Safety Report 25226223 (Version 1)
Quarter: 2025Q2

REPORT INFORMATION
  Report Type: Spontaneous
  Country: CN (occurrence: CN)
  Receive Date: 20250422
  Receipt Date: 20250422
  Transmission Date: 20250716
  Serious: Yes (Life-Threatening)
  Sender: BAYER HEALTHCARE PHARMACEUTICALS INC.
  Company Number: CN-BAYER-2025A054202

PATIENT
  Age: 64 Year
  Sex: Female
  Weight: 55 kg

DRUGS (5)
  1. GLUCOBAY [Interacting]
     Active Substance: ACARBOSE
     Indication: Diabetes mellitus
     Dosage: 100 MG, TID
     Route: 048
     Dates: start: 20250403, end: 20250412
  2. LIRAGLUTIDE [Interacting]
     Active Substance: LIRAGLUTIDE
     Indication: Diabetes mellitus
     Dosage: 0.6 MG, QD
     Route: 058
     Dates: start: 20250403, end: 20250412
  3. DORZAGLIATIN [Interacting]
     Active Substance: DORZAGLIATIN
     Indication: Diabetes mellitus
     Dosage: 75 MG, BID
     Route: 048
     Dates: start: 20250403, end: 20250412
  4. INSULIN GLARGINE [Interacting]
     Active Substance: INSULIN GLARGINE
     Indication: Diabetes mellitus
     Dosage: 22 IU, QD
     Route: 058
     Dates: start: 20250403, end: 20250412
  5. DAPAGLIFLOZIN PROPANEDIOL\METFORMIN HYDROCHLORIDE [Interacting]
     Active Substance: DAPAGLIFLOZIN PROPANEDIOL\METFORMIN HYDROCHLORIDE
     Indication: Diabetes mellitus
     Dosage: 1 DF, QD
     Route: 048
     Dates: start: 20250403, end: 20250412

REACTIONS (3)
  - Hypoglycaemia [Recovering/Resolving]
  - Dysarthria [Recovered/Resolved]
  - Gait disturbance [Recovered/Resolved]

NARRATIVE: CASE EVENT DATE: 20250412
